FAERS Safety Report 9333396 (Version 1)
Quarter: 2013Q2

REPORT INFORMATION
  Report Type: Spontaneous
  Country: US (occurrence: US)
  Receive Date: 20130606
  Receipt Date: 20130606
  Transmission Date: 20140414
  Serious: No
  Sender: FDA-Public Use
  Company Number: US-GLAXOSMITHKLINE-A0993504A

PATIENT
  Age: 65 Year
  Sex: Male

DRUGS (8)
  1. LAMICTAL [Suspect]
     Indication: GRAND MAL CONVULSION
     Dosage: 200MG TWICE PER DAY
     Route: 048
     Dates: start: 2007
  2. WARFARIN [Concomitant]
  3. DILTIAZEM [Concomitant]
  4. DIGOXIN [Concomitant]
  5. VITAMIN B [Concomitant]
  6. VITAMIN C [Concomitant]
  7. VITAMIN D [Concomitant]
  8. FOLIC ACID [Concomitant]

REACTIONS (2)
  - Feeling abnormal [Unknown]
  - Back pain [Unknown]
